FAERS Safety Report 16212999 (Version 2)
Quarter: 2019Q2

REPORT INFORMATION
  Report Type: Spontaneous
  Country: TR (occurrence: TR)
  Receive Date: 20190418
  Receipt Date: 20190424
  Transmission Date: 20190711
  Serious: Yes (Hospitalization)
  Sender: FDA-Public Use
  Company Number: TR-SA-2019SA107479

PATIENT
  Age: 70 Year
  Sex: Male

DRUGS (2)
  1. BCG FOR IMMUNOTHERAPY [Suspect]
     Active Substance: BACILLUS CALMETTE-GUERIN ANTIGEN, UNSPECIFIED SUBSTRAIN
     Indication: BLADDER CANCER
     Dosage: UNK
     Route: 043
  2. BCG FOR IMMUNOTHERAPY [Suspect]
     Active Substance: BACILLUS CALMETTE-GUERIN ANTIGEN, UNSPECIFIED SUBSTRAIN
     Dosage: UNK
     Route: 043

REACTIONS (18)
  - Rash maculo-papular [Unknown]
  - Breath sounds abnormal [Unknown]
  - Tachypnoea [Unknown]
  - Disseminated intravascular coagulation [Unknown]
  - Bacillus infection [Unknown]
  - Pyrexia [Unknown]
  - Loss of consciousness [Unknown]
  - Multiple organ dysfunction syndrome [Unknown]
  - General physical condition abnormal [Recovering/Resolving]
  - Oedema peripheral [Unknown]
  - Ocular icterus [Unknown]
  - Malaise [Unknown]
  - Respiratory failure [Unknown]
  - Urine output decreased [Unknown]
  - Rash generalised [Unknown]
  - Feeling abnormal [Unknown]
  - Pulmonary embolism [Unknown]
  - Oxygen consumption increased [Unknown]
